FAERS Safety Report 10589900 (Version 1)
Quarter: 2014Q4

REPORT INFORMATION
  Report Type: Spontaneous
  Country: US (occurrence: None)
  Receive Date: 20141117
  Receipt Date: 20141117
  Transmission Date: 20150529
  Serious: Yes (Other)
  Sender: FDA-Public Use
  Company Number: None

PATIENT
  Age: 67 Year
  Sex: Female
  Weight: 74.84 kg

DRUGS (1)
  1. ESCITALOPRAM [Suspect]
     Active Substance: ESCITALOPRAM OXALATE
     Indication: DEPRESSION
     Dosage: 1/DAY
     Dates: start: 201305

REACTIONS (8)
  - Haemoglobin decreased [None]
  - Condition aggravated [None]
  - Dysstasia [None]
  - Drug withdrawal syndrome [None]
  - Abdominal pain upper [None]
  - Gastrointestinal haemorrhage [None]
  - Gait disturbance [None]
  - Product substitution issue [None]

NARRATIVE: CASE EVENT DATE: 20131025
